FAERS Safety Report 15132764 (Version 1)
Quarter: 2018Q3

REPORT INFORMATION
  Report Type: Report from Study
  Country: US (occurrence: US)
  Receive Date: 20180712
  Receipt Date: 20180712
  Transmission Date: 20181010
  Serious: Yes (Other)
  Sender: FDA-Public Use
  Company Number: US-AMGEN-USASL2018092700

PATIENT
  Age: 56 Year
  Sex: Male

DRUGS (1)
  1. REPATHA [Suspect]
     Active Substance: EVOLOCUMAB
     Indication: HYPERCHOLESTEROLAEMIA
     Dosage: 140 MG, Q2WK
     Route: 065
     Dates: start: 201805, end: 2018

REACTIONS (3)
  - Hyperhidrosis [Unknown]
  - Blood glucose abnormal [Recovering/Resolving]
  - Choking sensation [Unknown]

NARRATIVE: CASE EVENT DATE: 2018
